FAERS Safety Report 24637762 (Version 5)
Quarter: 2025Q4

REPORT INFORMATION
  Report Type: Spontaneous
  Country: US (occurrence: US)
  Receive Date: 20241119
  Receipt Date: 20251008
  Transmission Date: 20260117
  Serious: No
  Sender: BLUEPRINT MEDICINES
  Company Number: US-Blueprint Medicines Corporation-5381

PATIENT
  Age: 72 Year
  Sex: Female

DRUGS (3)
  1. AYVAKIT [Suspect]
     Active Substance: AVAPRITINIB
     Indication: Systemic mastocytosis
     Route: 065
     Dates: start: 20241101, end: 20241206
  2. AYVAKIT [Suspect]
     Active Substance: AVAPRITINIB
     Route: 048
     Dates: start: 20241101
  3. AYVAKIT [Suspect]
     Active Substance: AVAPRITINIB
     Route: 048
     Dates: start: 20241101

REACTIONS (13)
  - Diarrhoea [Unknown]
  - Feeling abnormal [Unknown]
  - Neoplasm [Not Recovered/Not Resolved]
  - Adverse drug reaction [Not Recovered/Not Resolved]
  - Aphonia [Unknown]
  - Weight increased [Unknown]
  - Body temperature fluctuation [Unknown]
  - Back pain [Unknown]
  - Skin lesion [Unknown]
  - Dyspnoea [Unknown]
  - Lung disorder [Unknown]
  - Condition aggravated [Unknown]
  - Weight decreased [Unknown]

NARRATIVE: CASE EVENT DATE: 20241101
